FAERS Safety Report 20367470 (Version 1)
Quarter: 2022Q1

REPORT INFORMATION
  Report Type: Report from Study
  Country: AT (occurrence: AT)
  Receive Date: 20220124
  Receipt Date: 20220124
  Transmission Date: 20220424
  Serious: Yes (Hospitalization, Other)
  Sender: FDA-Public Use
  Company Number: AT-ABBVIE-22K-009-4243071-00

PATIENT
  Sex: Female

DRUGS (4)
  1. HUMIRA [Suspect]
     Active Substance: ADALIMUMAB
     Indication: Rheumatoid arthritis
     Route: 058
     Dates: start: 201607
  2. LISINOPRIL [Concomitant]
     Active Substance: LISINOPRIL
     Indication: Hypertension
     Dosage: LISINOPRIL 20
     Route: 048
  3. AMLODIPINE BESYLATE [Concomitant]
     Active Substance: AMLODIPINE BESYLATE
     Indication: Hypertension
     Dosage: AMLODIPIN 5
     Route: 048
  4. SEROPRAM [Concomitant]
     Indication: Product used for unknown indication

REACTIONS (3)
  - Bladder neoplasm [Unknown]
  - Blood urine present [Unknown]
  - Micturition urgency [Recovering/Resolving]

NARRATIVE: CASE EVENT DATE: 20211201
